FAERS Safety Report 6919656-4 (Version None)
Quarter: 2010Q3

REPORT INFORMATION
  Report Type: 
  Country: None (occurrence: None)
  Receive Date: 20100811
  Receipt Date: 20100730
  Transmission Date: 20110219
  Serious: Yes (Life-Threatening, Hospitalization)
  Sender: FDA-Public Use
  Company Number: US-JNJFOC-20100800575

PATIENT
  Sex: Female
  Weight: 73.48 kg

DRUGS (2)
  1. NUCYNTA [Suspect]
     Indication: ARTHRALGIA
     Dosage: FREQUENCY: EVERY 8 HOURS
     Route: 048
  2. STEROIDS NOS [Suspect]
     Indication: PRODUCT USED FOR UNKNOWN INDICATION
     Route: 050

REACTIONS (10)
  - AGGRESSION [None]
  - CARDIAC ARREST [None]
  - DYSPNOEA [None]
  - HYPOTENSION [None]
  - LATEX ALLERGY [None]
  - LOSS OF CONSCIOUSNESS [None]
  - PRURITUS [None]
  - SWELLING [None]
  - URINARY INCONTINENCE [None]
  - WEIGHT INCREASED [None]
